FAERS Safety Report 13340509 (Version 3)
Quarter: 2018Q2

REPORT INFORMATION
  Report Type: Report from Study
  Country: US (occurrence: US)
  Receive Date: 20170316
  Receipt Date: 20180412
  Transmission Date: 20180711
  Serious: No
  Sender: FDA-Public Use
  Company Number: US-ALEXION PHARMACEUTICALS INC.-A201702466

PATIENT
  Age: 65 Year
  Sex: Female

DRUGS (3)
  1. SOLIRIS [Suspect]
     Active Substance: ECULIZUMAB
     Dosage: 1200 UNK, OTHER
     Route: 042
     Dates: start: 20120724, end: 20180322
  2. IMURAN [Concomitant]
     Active Substance: AZATHIOPRINE
     Indication: PROPHYLAXIS AGAINST TRANSPLANT REJECTION
     Dosage: 150 MG, UNK
     Route: 048
  3. SOLIRIS [Suspect]
     Active Substance: ECULIZUMAB
     Indication: ATYPICAL HAEMOLYTIC URAEMIC SYNDROME
     Dosage: 1200 MG, UNK
     Route: 042
     Dates: start: 20120724, end: 20170227

REACTIONS (3)
  - Restlessness [Unknown]
  - Insomnia [Not Recovered/Not Resolved]
  - Drug hypersensitivity [Unknown]

NARRATIVE: CASE EVENT DATE: 20170301
